FAERS Safety Report 4548563-X (Version None)
Quarter: 2005Q1

REPORT INFORMATION
  Report Type: 
  Country: None (occurrence: None)
  Receive Date: 20050106
  Receipt Date: 20041229
  Transmission Date: 20050727
  Serious: Yes (Hospitalization)
  Sender: FDA-Public Use
  Company Number: KII-2004-0014451

PATIENT
  Age: 2 Year
  Sex: Male

DRUGS (2)
  1. OXYCONTIN [Suspect]
     Dosage: ORAL
     Route: 048
     Dates: start: 20041118
  2. ACETAMINOPHEN [Suspect]
     Dosage: ORAL
     Route: 048
     Dates: start: 20041118

REACTIONS (1)
  - ACCIDENTAL EXPOSURE [None]
